FAERS Safety Report 9026245 (Version 1)
Quarter: 2013Q1

REPORT INFORMATION
  Report Type: Spontaneous
  Country: BR (occurrence: BR)
  Receive Date: 20130123
  Receipt Date: 20130123
  Transmission Date: 20140127
  Serious: Yes (Other)
  Sender: FDA-Public Use
  Company Number: PHHY2013BR005842

PATIENT
  Age: 69 Year
  Sex: Female
  Weight: 54 kg

DRUGS (6)
  1. DIOVAN [Suspect]
     Indication: HYPERTENSION
     Dosage: 160 MG, DAILY
     Route: 048
     Dates: start: 200809
  2. DIOVAN [Suspect]
     Dosage: 320 MG, DAILY
     Route: 048
     Dates: start: 200905
  3. DIOVAN HCT [Suspect]
     Indication: HYPERTENSION
     Dosage: 1 DF (320/12.5MG) DAILY
     Route: 048
     Dates: start: 200906
  4. SELOZOK [Concomitant]
     Indication: CARDIAC DISORDER
     Dosage: 2 DF (100MG) DAILY
     Route: 048
  5. CLINFAR [Concomitant]
     Indication: BLOOD CHOLESTEROL
     Dosage: 10 MG, DAILY
     Route: 048
  6. CLOPIDOGREL [Concomitant]
     Indication: BLOOD DISORDER
     Dosage: 75 MG, DAILY
     Route: 048

REACTIONS (1)
  - Infarction [Recovered/Resolved]
